FAERS Safety Report 10207025 (Version 2)
Quarter: 2014Q2

REPORT INFORMATION
  Report Type: Spontaneous
  Country: MX (occurrence: MX)
  Receive Date: 20140530
  Receipt Date: 20140611
  Transmission Date: 20141212
  Serious: Yes (Hospitalization, Other)
  Sender: FDA-Public Use
  Company Number: MX-INCYTE CORPORATION-2014IN001451

PATIENT
  Age: 60 Year
  Sex: Male

DRUGS (2)
  1. JAKAVI [Suspect]
     Indication: MYELOFIBROSIS
     Dosage: 20 MG, BID
     Route: 048
     Dates: start: 201401
  2. JAKAVI [Suspect]
     Dosage: 15 MG, BID
     Route: 048
     Dates: end: 20140421

REACTIONS (4)
  - Pneumonitis [Recovering/Resolving]
  - Pleural effusion [Recovering/Resolving]
  - Pulmonary tuberculosis [Recovering/Resolving]
  - Pulmonary necrosis [Unknown]
